FAERS Safety Report 16254856 (Version 4)
Quarter: 2021Q2

REPORT INFORMATION
  Report Type: Report from Study
  Country: CR (occurrence: CR)
  Receive Date: 20190430
  Receipt Date: 20210413
  Transmission Date: 20210716
  Serious: Yes (Other)
  Sender: FDA-Public Use
  Company Number: PHHY2019CR032857

PATIENT
  Sex: Female
  Weight: 82 kg

DRUGS (3)
  1. VYMADA [Suspect]
     Active Substance: SACUBITRIL\VALSARTAN
     Dosage: 200 MG, UNKNOWN
     Route: 065
  2. VYMADA [Suspect]
     Active Substance: SACUBITRIL\VALSARTAN
     Indication: PRODUCT USED FOR UNKNOWN INDICATION
     Dosage: 200 MG, BID (STARTED APPROXIMATELY SINCE ONE YEAR AND A HALF AGO AND STOPPED APPROXIMATELY SINCE 1 M
     Route: 065
  3. VYMADA [Suspect]
     Active Substance: SACUBITRIL\VALSARTAN
     Dosage: 100 MG (STARTED APPROXIMATELY SINCE 1 MONTH AGO)
     Route: 065

REACTIONS (9)
  - Cardiomegaly [Unknown]
  - Blood glucose abnormal [Unknown]
  - Stress [Unknown]
  - Weight decreased [Unknown]
  - Chest pain [Unknown]
  - Fatigue [Unknown]
  - Mood altered [Unknown]
  - Diabetes mellitus [Unknown]
  - Ejection fraction decreased [Unknown]
